FAERS Safety Report 5001799-6 (Version None)
Quarter: 2006Q2

REPORT INFORMATION
  Report Type: 
  Country: None (occurrence: None)
  Receive Date: 20060512
  Receipt Date: 20060512
  Transmission Date: 20061013
  Serious: Yes (Life-Threatening, Hospitalization, Other)
  Sender: FDA-Public Use
  Company Number: None

PATIENT
  Age: 16 Year
  Sex: Female
  Weight: 54.4316 kg

DRUGS (1)
  1. TYLENOL EXTRA STRENGTH  500 MG MCNEIL [Suspect]
     Indication: HEADACHE
     Dosage: TOOK 30 TABLETS  ONCE PO
     Route: 048
     Dates: start: 20060508

REACTIONS (2)
  - HEPATIC FAILURE [None]
  - INCORRECT DOSE ADMINISTERED [None]
